FAERS Safety Report 18187914 (Version 1)
Quarter: 2020Q3

REPORT INFORMATION
  Report Type: Spontaneous
  Country: US (occurrence: US)
  Receive Date: 20200824
  Receipt Date: 20200824
  Transmission Date: 20201103
  Serious: No
  Sender: FDA-Public Use
  Company Number: US-ENDO PHARMACEUTICALS INC-2019-106734

PATIENT
  Age: 57 Year
  Sex: Male

DRUGS (6)
  1. TESTOPEL [Suspect]
     Active Substance: TESTOSTERONE
     Dosage: 12 PELLETS (900 MG), UNKNOWN
     Route: 065
     Dates: start: 201904
  2. TESTOPEL [Suspect]
     Active Substance: TESTOSTERONE
     Indication: PRODUCT USED FOR UNKNOWN INDICATION
     Dosage: UNK UNKNOWN, UNKNOWN
     Route: 065
     Dates: start: 201901
  3. TESTOPEL [Suspect]
     Active Substance: TESTOSTERONE
     Dosage: 12 PELLETS (900 MG), UNKNOWN
     Route: 065
     Dates: start: 201904
  4. TESTOPEL [Suspect]
     Active Substance: TESTOSTERONE
     Dosage: UNK, RECEIVED APPROX. 8 TIMES (VARYING NUMBER OF PELLETS)
     Route: 065
  5. TESTOPEL [Suspect]
     Active Substance: TESTOSTERONE
     Indication: PRODUCT USED FOR UNKNOWN INDICATION
     Dosage: UNK UNKNOWN, UNKNOWN
     Route: 065
     Dates: start: 201901
  6. TESTOPEL [Suspect]
     Active Substance: TESTOSTERONE
     Dosage: UNK, RECEIVED APPROX. 8 TIMES (VARYING NUMBER OF PELLETS)
     Route: 065

REACTIONS (3)
  - Malaise [Unknown]
  - Nausea [Unknown]
  - Prescribed overdose [Unknown]

NARRATIVE: CASE EVENT DATE: 201904
